FAERS Safety Report 8408200-0 (Version None)
Quarter: 2012Q2

REPORT INFORMATION
  Report Type: 
  Country: None (occurrence: None)
  Receive Date: 20120529
  Receipt Date: 20051124
  Transmission Date: 20120825
  Serious: Yes (Hospitalization, Disabling, Other)
  Sender: FDA-Public Use
  Company Number: 02100-JPN-05-0616

PATIENT
  Age: 77 Year
  Sex: Male

DRUGS (3)
  1. PLETAL [Suspect]
     Indication: LACUNAR INFARCTION
     Dosage: 50 MG, BID, ORAL, ORAL
     Route: 048
     Dates: start: 20040909, end: 20041015
  2. FLUVASTATIN [Concomitant]
  3. WARFARIN SODIUM [Concomitant]
     Dates: start: 20041001, end: 20041015

REACTIONS (3)
  - CEREBRAL INFARCTION [None]
  - GASTRIC ULCER HAEMORRHAGE [None]
  - INFECTION [None]
